FAERS Safety Report 23941327 (Version 1)
Quarter: 2024Q2

REPORT INFORMATION
  Report Type: Spontaneous
  Country: US (occurrence: US)
  Receive Date: 20240605
  Receipt Date: 20240605
  Transmission Date: 20240716
  Serious: No
  Sender: FDA-Public Use
  Company Number: US-BIOGEN-2023BI01219707

PATIENT
  Sex: Female

DRUGS (1)
  1. TYSABRI [Suspect]
     Active Substance: NATALIZUMAB
     Indication: Multiple sclerosis
     Dosage: EVERY 4 WEEKS
     Route: 050
     Dates: start: 20230209

REACTIONS (35)
  - Decreased appetite [Not Recovered/Not Resolved]
  - Reading disorder [Not Recovered/Not Resolved]
  - Constipation [Unknown]
  - Thyroid disorder [Unknown]
  - Dyslexia [Unknown]
  - Dehydration [Unknown]
  - Syncope [Unknown]
  - Gait disturbance [Unknown]
  - Visual impairment [Unknown]
  - Head injury [Unknown]
  - Loss of consciousness [Unknown]
  - Tooth injury [Unknown]
  - Mouth injury [Unknown]
  - Hypoaesthesia [Unknown]
  - Mobility decreased [Unknown]
  - Speech disorder [Unknown]
  - Aphasia [Unknown]
  - Asthenia [Unknown]
  - Balance disorder [Unknown]
  - Burning sensation [Unknown]
  - Fracture [Unknown]
  - Arthropathy [Unknown]
  - Discomfort [Unknown]
  - Chromaturia [Unknown]
  - Dry eye [Unknown]
  - Gastrointestinal disorder [Unknown]
  - Fluid intake reduced [Unknown]
  - Infection parasitic [Unknown]
  - Fall [Recovered/Resolved]
  - Limb injury [Unknown]
  - Nausea [Unknown]
  - Pain in extremity [Unknown]
  - Dizziness [Unknown]
  - Fatigue [Unknown]
  - Arthralgia [Unknown]

NARRATIVE: CASE EVENT DATE: 20230101
